FAERS Safety Report 6986819-1 (Version None)
Quarter: 2010Q3

REPORT INFORMATION
  Report Type: 
  Country: None (occurrence: None)
  Receive Date: 20100915
  Receipt Date: 20090806
  Transmission Date: 20110219
  Serious: No
  Sender: FDA-Public Use
  Company Number: US-WYE-H10527209

PATIENT
  Age: 75 Year
  Sex: Male
  Weight: 95.79 kg

DRUGS (2)
  1. PRISTIQ [Suspect]
     Route: 048
  2. WARFARIN SODIUM [Suspect]
     Indication: ATRIAL FIBRILLATION
     Dosage: 2 MG X 4 DAYS, 1 MG X 3 DAYS
     Route: 048
     Dates: start: 19990101

REACTIONS (1)
  - INTERNATIONAL NORMALISED RATIO INCREASED [None]
